FAERS Safety Report 8204615-4 (Version None)
Quarter: 2012Q1

REPORT INFORMATION
  Report Type: 
  Country: None (occurrence: None)
  Receive Date: 20120313
  Receipt Date: 20111212
  Transmission Date: 20120608
  Serious: No
  Sender: FDA-Public Use
  Company Number: US-TEVA-309300USA

PATIENT

DRUGS (1)
  1. METHYLDOPA [Suspect]

REACTIONS (3)
  - DYSSTASIA [None]
  - DRUG DISPENSING ERROR [None]
  - SOMNOLENCE [None]
